FAERS Safety Report 5384542-0 (Version None)
Quarter: 2007Q3

REPORT INFORMATION
  Report Type: 
  Country: None (occurrence: None)
  Receive Date: 20070711
  Receipt Date: 20060811
  Transmission Date: 20080115
  Serious: No
  Sender: FDA-Public Use
  Company Number: US-AMGEN-KDL183817

PATIENT
  Sex: Female
  Weight: 70.8 kg

DRUGS (3)
  1. KINERET [Suspect]
     Indication: RHEUMATOID ARTHRITIS
     Route: 058
     Dates: start: 20060606, end: 20060623
  2. RELAFEN [Concomitant]
     Dates: start: 20020912
  3. PREDNISONE [Concomitant]
     Dates: start: 20060712

REACTIONS (4)
  - HYPERSENSITIVITY [None]
  - INJECTION SITE PAIN [None]
  - INJECTION SITE REACTION [None]
  - THERAPEUTIC RESPONSE DELAYED [None]
